FAERS Safety Report 20636708 (Version 1)
Quarter: 2022Q1

REPORT INFORMATION
  Report Type: Spontaneous
  Country: US (occurrence: US)
  Receive Date: 20220325
  Receipt Date: 20220325
  Transmission Date: 20220423
  Serious: No
  Sender: FDA-Public Use
  Company Number: US-PFIZER INC-202200327628

PATIENT
  Age: 38 Year
  Sex: Male

DRUGS (2)
  1. BRAFTOVI [Suspect]
     Active Substance: ENCORAFENIB
     Indication: Metastatic malignant melanoma
     Dosage: 450 MG, DAILY (^I TAKE 6 BRAF CAPSULES IN THE MORNING WITH THE 3 MEK CAPSULES, AND THEN I TAKE THE O
     Dates: start: 202110
  2. MEKTOVI [Suspect]
     Active Substance: BINIMETINIB
     Indication: Metastatic malignant melanoma
     Dosage: 90 MG, DAILY (^I TAKE 6 BRAF CAPSULES IN THE MORNING WITH THE 3 MEK CAPSULES, AND THEN I TAKE THE OT
     Dates: start: 202110

REACTIONS (4)
  - Abdominal pain upper [Recovered/Resolved]
  - Pain in extremity [Unknown]
  - Peripheral swelling [Unknown]
  - Dry skin [Unknown]
